FAERS Safety Report 4524696-9 (Version None)
Quarter: 2004Q4

REPORT INFORMATION
  Report Type: 
  Country: None (occurrence: None)
  Receive Date: 20041211
  Receipt Date: 20041123
  Transmission Date: 20050328
  Serious: Yes (Hospitalization)
  Sender: FDA-Public Use
  Company Number: DE-MERCK-0411DEU00486

PATIENT
  Age: 62 Year
  Sex: Female
  Weight: 62 kg

DRUGS (5)
  1. VIOXX [Suspect]
     Indication: LOCALISED OSTEOARTHRITIS
     Route: 048
     Dates: start: 20000201, end: 20020401
  2. BUDESONIDE [Concomitant]
     Route: 065
  3. ALBUTEROL SULFATE [Concomitant]
     Route: 065
  4. SALMETEROL XINAFOATE [Concomitant]
     Route: 065
  5. [THERAPY UNSPECIFIED] [Concomitant]
     Indication: GLAUCOMA
     Route: 047

REACTIONS (3)
  - AUTOIMMUNE DISORDER [None]
  - BLOOD PRESSURE IMMEASURABLE [None]
  - TEMPORAL ARTERITIS [None]
